FAERS Safety Report 21801500 (Version 2)
Quarter: 2023Q1

REPORT INFORMATION
  Report Type: Spontaneous
  Country: US (occurrence: US)
  Receive Date: 20221230
  Receipt Date: 20230317
  Transmission Date: 20230418
  Serious: No
  Sender: FDA-Public Use
  Company Number: US-SA-SAC20221229000856

PATIENT
  Age: 59 Year
  Sex: Female
  Weight: 127.44 kg

DRUGS (13)
  1. DUPIXENT [Suspect]
     Active Substance: DUPILUMAB
     Indication: Chronic rhinosinusitis with nasal polyps
     Dosage: 300 MG, QOW
     Route: 058
     Dates: start: 20221011
  2. DUPIXENT [Suspect]
     Active Substance: DUPILUMAB
     Indication: Asthma
  3. VITAMIN D3 [Concomitant]
     Active Substance: CHOLECALCIFEROL
     Dosage: 2000 U, QD
     Route: 048
  4. SYMBICORT [Concomitant]
     Active Substance: BUDESONIDE\FORMOTEROL FUMARATE DIHYDRATE
     Dosage: 2 DF, BID (160-4.5  MCG/ACTUATION INHALER)
  5. HYDROCHLOROTHIAZIDE [Concomitant]
     Active Substance: HYDROCHLOROTHIAZIDE
     Dosage: 1 DF, QD
     Route: 048
     Dates: start: 20220906
  6. ALBUTEROL SULFATE [Concomitant]
     Active Substance: ALBUTEROL SULFATE
     Dosage: 2 DF, Q4H (INHALE 2 PUFFS AS INSTRUCTED EVERY 4 HOURS AS NEEDED)
     Route: 055
     Dates: start: 20220906
  7. NORVASC [Concomitant]
     Active Substance: AMLODIPINE BESYLATE
     Dosage: 1 DF, QD
     Route: 048
     Dates: start: 20220906, end: 20230305
  8. PRILOSEC [Concomitant]
     Active Substance: OMEPRAZOLE MAGNESIUM
     Dosage: 1 DF, QD
     Route: 048
     Dates: start: 20220906
  9. SPIRIVA RESPIMAT [Concomitant]
     Active Substance: TIOTROPIUM BROMIDE
     Dosage: 2 DF, QD (1.25   MCG/ACTUATION MIST)
     Route: 048
     Dates: start: 20220906
  10. ASTELIN [Concomitant]
     Active Substance: AZELASTINE HYDROCHLORIDE
     Dosage: UNK UNK, BID (USE 1 SPRAY IN EACH NOSTRIL TWICE DAILY AS NEEDED)
     Dates: start: 20220308
  11. PULMICORT TURBUHALER [Concomitant]
     Active Substance: BUDESONIDE
     Dosage: 1 DF, BID(0.5 MG/2ML)
     Dates: start: 20211111
  12. FLONASE [Concomitant]
     Active Substance: FLUTICASONE PROPIONATE
     Dosage: UNK UNK, QD (USE 1-2 SPRAY EACH NOSTRIL ONCE DAILY)
     Route: 045
     Dates: start: 20200109
  13. SINGULAIR [Concomitant]
     Active Substance: MONTELUKAST SODIUM

REACTIONS (2)
  - Headache [Recovered/Resolved]
  - Nausea [Recovered/Resolved]

NARRATIVE: CASE EVENT DATE: 20221001
